FAERS Safety Report 14517328 (Version 1)
Quarter: 2018Q1

REPORT INFORMATION
  Report Type: Report from Study
  Country: US (occurrence: US)
  Receive Date: 20180212
  Receipt Date: 20180212
  Transmission Date: 20180509
  Serious: Yes (Hospitalization, Other)
  Sender: FDA-Public Use
  Company Number: US-ROCHE-2069266

PATIENT

DRUGS (5)
  1. AMOXICILLIN. [Concomitant]
     Active Substance: AMOXICILLIN
  2. RITUXIMAB. [Suspect]
     Active Substance: RITUXIMAB
     Indication: LYMPHOMA
     Dosage: 4 INFUSIONS
     Route: 042
  3. SULFAMETHOXAZOLE/TRIMETHOPRIM [Concomitant]
     Active Substance: SULFAMETHOXAZOLE\TRIMETHOPRIM
     Dosage: PROPHYLAXIS THERAPY
     Route: 065
  4. DAPSONE. [Concomitant]
     Active Substance: DAPSONE
  5. EVEROLIMUS. [Suspect]
     Active Substance: EVEROLIMUS
     Indication: LYMPHOMA
     Route: 048

REACTIONS (27)
  - Anaemia [Unknown]
  - Hypertension [Unknown]
  - Blood alkaline phosphatase increased [Unknown]
  - Hyperglycaemia [Unknown]
  - Hypertriglyceridaemia [Unknown]
  - Cellulitis [Unknown]
  - Diarrhoea [Unknown]
  - Lymphopenia [Unknown]
  - Neutropenia [Unknown]
  - Arthralgia [Unknown]
  - Hypokalaemia [Unknown]
  - Hypophosphataemia [Unknown]
  - Retinal tear [Unknown]
  - Lymphocytosis [Unknown]
  - Thrombocytopenia [Unknown]
  - Staphylococcal infection [Unknown]
  - Haemophilus bacteraemia [Unknown]
  - Pneumonia viral [Unknown]
  - Rectal abscess [Unknown]
  - Renal failure [Unknown]
  - Rheumatoid arthritis [Unknown]
  - Herpes zoster [Unknown]
  - Pneumonia [Unknown]
  - Pyrexia [Unknown]
  - Mucosal inflammation [Unknown]
  - Respiratory failure [Unknown]
  - Bacterial sepsis [Unknown]
